FAERS Safety Report 18310258 (Version 1)
Quarter: 2020Q3

REPORT INFORMATION
  Report Type: Spontaneous
  Country: FR (occurrence: FR)
  Receive Date: 20200924
  Receipt Date: 20200924
  Transmission Date: 20201103
  Serious: Yes (Other)
  Sender: FDA-Public Use
  Company Number: FR-PURDUE-USA-2020-0167813

PATIENT
  Sex: Female

DRUGS (6)
  1. SKENAN [Suspect]
     Active Substance: MORPHINE SULFATE
     Indication: SUBSTANCE USE
     Dosage: 200 MG, UNK
     Route: 045
  2. CODEINE [Suspect]
     Active Substance: CODEINE
     Indication: SUBSTANCE USE
     Dosage: 150 MG, UNK (150 MG PER INTAKE)
     Route: 065
  3. TRAMADOL. [Suspect]
     Active Substance: TRAMADOL
     Indication: SUBSTANCE USE
     Dosage: 300 MG, UNK (300 MG PER INTAKE)
     Route: 065
  4. CODEINE [Suspect]
     Active Substance: CODEINE
     Dosage: 60 MG, UNK (60 MG PER INTAKE)
     Route: 065
  5. MORPHINE SULFATE (SIMILAR TO NDA 19?516) [Suspect]
     Active Substance: MORPHINE SULFATE
     Indication: PRODUCT USED FOR UNKNOWN INDICATION
     Dosage: 30 MG, UNK
     Route: 045
  6. SKENAN [Suspect]
     Active Substance: MORPHINE SULFATE
     Dosage: UNK (FROM 60 TO 80 MG IN A SINGLE INTAKE, 2 TO 3 TIMES WEEKLY)
     Route: 045

REACTIONS (16)
  - Diarrhoea [Unknown]
  - Feeling hot [Unknown]
  - Anxiolytic therapy [Unknown]
  - Wrong technique in product usage process [Unknown]
  - Rhinorrhoea [Unknown]
  - Yawning [Unknown]
  - Drug tolerance increased [Unknown]
  - Somnolence [Unknown]
  - Tension [Unknown]
  - Feeling of body temperature change [Unknown]
  - Drug abuse [Unknown]
  - Hyperhidrosis [Unknown]
  - Nightmare [Unknown]
  - Nausea [Unknown]
  - Drug dependence [Unknown]
  - Intentional product use issue [Unknown]
